FAERS Safety Report 5212072-5 (Version None)
Quarter: 2007Q1

REPORT INFORMATION
  Report Type: 
  Country: None (occurrence: None)
  Receive Date: 20070118
  Receipt Date: 20070109
  Transmission Date: 20070707
  Serious: Yes (Other)
  Sender: FDA-Public Use
  Company Number: US-ROCHE-451235

PATIENT
  Age: 44 Year
  Sex: Female
  Weight: 84.4 kg

DRUGS (3)
  1. PEGASYS [Suspect]
     Route: 058
     Dates: start: 20060504, end: 20060606
  2. PEGASYS [Suspect]
     Route: 058
     Dates: start: 20060613
  3. RIBAVIRIN [Suspect]
     Route: 048
     Dates: start: 20060504

REACTIONS (10)
  - APPETITE DISORDER [None]
  - EYE PAIN [None]
  - FATIGUE [None]
  - INJECTION SITE DISCOLOURATION [None]
  - LOSS OF CONSCIOUSNESS [None]
  - NEUTROPHIL COUNT DECREASED [None]
  - SINUSITIS [None]
  - VISION BLURRED [None]
  - WEIGHT DECREASED [None]
  - WHITE BLOOD CELL COUNT DECREASED [None]
